FAERS Safety Report 18582899 (Version 1)
Quarter: 2020Q4

REPORT INFORMATION
  Report Type: Spontaneous
  Country: NO (occurrence: NO)
  Receive Date: 20201205
  Receipt Date: 20201205
  Transmission Date: 20210114
  Serious: Yes (Hospitalization)
  Sender: FDA-Public Use
  Company Number: NVSC2020NO319484

PATIENT
  Age: 50 Year
  Sex: Female

DRUGS (11)
  1. IMUREL [Concomitant]
     Active Substance: AZATHIOPRINE SODIUM
     Indication: HEART TRANSPLANT
     Dosage: 50 MG,QD (L04AX01 - AZATIOPRIN )
     Route: 048
  2. PLAVIX [Concomitant]
     Active Substance: CLOPIDOGREL BISULFATE
     Indication: ANTIPLATELET THERAPY
     Dosage: 75 MG,QD (B01AC04 - KLOPIDOGREL   )
     Route: 048
  3. ATORVASTATIN [Concomitant]
     Active Substance: ATORVASTATIN
     Indication: HYPERCHOLESTEROLAEMIA
     Dosage: 10 MG,QD (C10AA05 - ATORVASTATIN )
     Route: 048
  4. SOMAC [Concomitant]
     Active Substance: PANTOPRAZOLE SODIUM
     Indication: GASTROOESOPHAGEAL REFLUX DISEASE
     Dosage: 20 MG,QD (A02BC02 - PANTOPRAZOL   )
     Route: 048
  5. CERTICAN [Concomitant]
     Active Substance: EVEROLIMUS
     Indication: HEART TRANSPLANT
     Dosage: 0.75 MG,Q12H (L04AA18 - EVEROLIMUS )
     Route: 048
  6. CALCIUM [Concomitant]
     Active Substance: CALCIUM
     Indication: MINERAL SUPPLEMENTATION
     Dosage: 500 MG,Q12H
     Route: 048
  7. ACLASTA [Suspect]
     Active Substance: ZOLEDRONIC ACID
     Indication: OSTEOPOROSIS
     Dosage: 5 MG
     Route: 042
     Dates: start: 20200916, end: 20200916
  8. ALBYL-E [Concomitant]
     Active Substance: ASPIRIN\MAGNESIUM OXIDE
     Indication: ANTIPLATELET THERAPY
     Dosage: 75 MG,QD (B01AC06 - ACETYLSALISYLSYRE )
     Route: 048
  9. AMLODIPIN SANDOZ [AMLODIPINE MESILATE] [Concomitant]
     Active Substance: AMLODIPINE MESYLATE
     Indication: HYPERTENSION
     Dosage: 5 MG,QD (C08CA01 - AMLODIPIN )
     Route: 048
  10. JARDIANCE [Concomitant]
     Active Substance: EMPAGLIFLOZIN
     Indication: DIABETES MELLITUS
     Dosage: 10 MG,QD (A10BK03 - EMPAGLIFLOZIN   )
     Route: 048
  11. PREDNISOLONE. [Concomitant]
     Active Substance: PREDNISOLONE
     Indication: HEART TRANSPLANT
     Dosage: 5 MG,QD (H02AB06 - PREDNISOLON )
     Route: 048

REACTIONS (8)
  - Asthenia [Recovered/Resolved]
  - Chills [Recovered/Resolved]
  - Dizziness [Recovered/Resolved with Sequelae]
  - Pyrexia [Recovered/Resolved]
  - Fear of death [Recovered/Resolved with Sequelae]
  - Dyspnoea [Recovered/Resolved with Sequelae]
  - Pain [Recovered/Resolved]
  - Chest pain [Recovered/Resolved with Sequelae]

NARRATIVE: CASE EVENT DATE: 20200917
